FAERS Safety Report 8784386 (Version 2)
Quarter: 2013Q1

REPORT INFORMATION
  Report Type: Report from Study
  Country: CA (occurrence: CA)
  Receive Date: 20120913
  Receipt Date: 20130122
  Transmission Date: 20140127
  Serious: Yes (Other)
  Sender: FDA-Public Use
  Company Number: CA-BRISTOL-MYERS SQUIBB COMPANY-16833816

PATIENT
  Age: 67 Year
  Sex: Male

DRUGS (5)
  1. ORENCIA [Suspect]
     Indication: RHEUMATOID ARTHRITIS
     Dosage: RECEIVED 3 INF; LAST INF ON 02-AUG-2012,16-SEP-12
     Route: 042
     Dates: start: 20120719
  2. ZOPICLONE [Concomitant]
  3. SYNTHROID [Concomitant]
  4. PREDNISONE [Concomitant]
  5. ARAVA [Concomitant]

REACTIONS (4)
  - Depression [Recovered/Resolved]
  - Stomatitis [Unknown]
  - Chills [Unknown]
  - Headache [Unknown]
